FAERS Safety Report 14689801 (Version 1)
Quarter: 2018Q1

REPORT INFORMATION
  Report Type: Spontaneous
  Country: FR (occurrence: FR)
  Receive Date: 20180328
  Receipt Date: 20180328
  Transmission Date: 20180509
  Serious: Yes (Hospitalization)
  Sender: FDA-Public Use
  Company Number: FR-TEVA-2018-FR-871714

PATIENT
  Age: 62 Year
  Sex: Male

DRUGS (10)
  1. ZYTIGA [Concomitant]
     Active Substance: ABIRATERONE ACETATE
     Dates: start: 20130901
  2. ELIGARD [Concomitant]
     Active Substance: LEUPROLIDE ACETATE
     Dates: start: 20040101
  3. CABAZITAXEL [Concomitant]
     Active Substance: CABAZITAXEL
     Dates: start: 20160501, end: 20161001
  4. XGEVA [Concomitant]
     Active Substance: DENOSUMAB
     Dates: start: 20130901
  5. TAXOTERE [Concomitant]
     Active Substance: DOCETAXEL
     Dates: start: 20121001, end: 20130501
  6. CARBOPLATIN. [Suspect]
     Active Substance: CARBOPLATIN
     Indication: PROSTATE CANCER METASTATIC
     Route: 042
     Dates: start: 20170901, end: 20170901
  7. ETOPOSIDE. [Suspect]
     Active Substance: ETOPOSIDE
     Indication: PROSTATE CANCER METASTATIC
     Route: 042
     Dates: start: 20170901, end: 20170901
  8. XOFIGO [Suspect]
     Active Substance: RADIUM RA-223 DICHLORIDE
     Indication: PROSTATE CANCER METASTATIC
     Route: 042
     Dates: start: 20150201, end: 20170501
  9. CASODEX [Concomitant]
     Active Substance: BICALUTAMIDE
     Dates: start: 20040101
  10. XTANDI [Concomitant]
     Active Substance: ENZALUTAMIDE
     Dates: start: 20160101, end: 20160501

REACTIONS (1)
  - Myelodysplastic syndrome [Not Recovered/Not Resolved]

NARRATIVE: CASE EVENT DATE: 20171001
